FAERS Safety Report 5725609-4 (Version None)
Quarter: 2008Q2

REPORT INFORMATION
  Report Type: 
  Country: None (occurrence: None)
  Receive Date: 20080501
  Receipt Date: 20080407
  Transmission Date: 20081010
  Serious: No
  Sender: FDA-Public Use
  Company Number: US-BOEHRINGER INGELHEIM GMBH, GERMANY-2008-BP-05383BP

PATIENT
  Age: 42 Year
  Sex: Female

DRUGS (2)
  1. ZANTAC 150 [Suspect]
     Route: 048
     Dates: start: 20080407, end: 20080407
  2. ZINC [Concomitant]
     Indication: IMMUNE SYSTEM DISORDER

REACTIONS (3)
  - CHEST PAIN [None]
  - DIZZINESS [None]
  - VOMITING [None]
